FAERS Safety Report 9731335 (Version 1)
Quarter: 2013Q4

REPORT INFORMATION
  Report Type: Spontaneous
  Country: CA (occurrence: CA)
  Receive Date: 20131205
  Receipt Date: 20131205
  Transmission Date: 20140711
  Serious: Yes (Hospitalization, Other)
  Sender: FDA-Public Use
  Company Number: CA-ROCHE-1311551

PATIENT
  Age: 79 Year
  Sex: Female

DRUGS (6)
  1. NAPROXEN SODIUM [Suspect]
     Indication: PRODUCT USED FOR UNKNOWN INDICATION
     Route: 065
  2. DICLOFENAC [Suspect]
     Indication: PRODUCT USED FOR UNKNOWN INDICATION
     Route: 065
  3. RISEDRONATE SODIUM [Suspect]
     Indication: PRODUCT USED FOR UNKNOWN INDICATION
     Route: 065
  4. ACTONEL [Suspect]
     Indication: PRODUCT USED FOR UNKNOWN INDICATION
     Route: 048
  5. RABEPRAZOLE [Concomitant]
     Route: 065
  6. NAPROXEN [Concomitant]
     Route: 065

REACTIONS (7)
  - Anaemia [Unknown]
  - Arthralgia [Unknown]
  - Faeces discoloured [Unknown]
  - Gastric ulcer [Unknown]
  - Gastrointestinal haemorrhage [Unknown]
  - Musculoskeletal pain [Unknown]
  - Pain in extremity [Unknown]
